FAERS Safety Report 5104031-8 (Version None)
Quarter: 2006Q3

REPORT INFORMATION
  Report Type: 
  Country: None (occurrence: None)
  Receive Date: 20060911
  Receipt Date: 20060829
  Transmission Date: 20061208
  Serious: Yes (Other)
  Sender: FDA-Public Use
  Company Number: 2006105308

PATIENT
  Age: 42 Year
  Sex: Male

DRUGS (4)
  1. ZIPRASIDONE HCL [Suspect]
     Indication: NEUROSIS
     Dosage: 40 MG, ORAL
     Route: 048
     Dates: start: 20060818, end: 20060827
  2. SERTRALINE [Concomitant]
  3. ALPRAZOLAM [Concomitant]
  4. HYDROXYZINE [Concomitant]

REACTIONS (4)
  - BLOOD PRESSURE INCREASED [None]
  - MUSCLE CONTRACTIONS INVOLUNTARY [None]
  - SPEECH DISORDER [None]
  - TREMOR [None]
